FAERS Safety Report 26053271 (Version 1)
Quarter: 2025Q4

REPORT INFORMATION
  Report Type: Spontaneous
  Country: EU (occurrence: EU)
  Receive Date: 20251117
  Receipt Date: 20251117
  Transmission Date: 20260117
  Serious: Yes (Hospitalization, Other)
  Sender: NOVARTIS
  Company Number: EU-002147023-NVSC2025RO172492

PATIENT
  Sex: Female

DRUGS (7)
  1. KISQALI [Suspect]
     Active Substance: RIBOCICLIB SUCCINATE
     Indication: Invasive lobular breast carcinoma
     Dosage: 600 MG, QD
     Route: 065
     Dates: start: 20230303
  2. KISQALI [Suspect]
     Active Substance: RIBOCICLIB SUCCINATE
     Dosage: UNK
     Route: 065
     Dates: end: 20230502
  3. KISQALI [Suspect]
     Active Substance: RIBOCICLIB SUCCINATE
     Dosage: 200 MG, QD (DAILY, FOR 21 DAYS PER MONTH)
     Route: 065
     Dates: start: 20230731
  4. KISQALI [Suspect]
     Active Substance: RIBOCICLIB SUCCINATE
     Dosage: 400 MG, QD
     Route: 065
  5. LETROZOLE [Concomitant]
     Active Substance: LETROZOLE
     Indication: Invasive lobular breast carcinoma
     Dosage: UNK
     Route: 065
     Dates: start: 20230303, end: 20230607
  6. FULVESTRANT [Concomitant]
     Active Substance: FULVESTRANT
     Indication: Invasive lobular breast carcinoma
     Dosage: UNK
     Route: 030
     Dates: start: 20230621
  7. XGEVA [Concomitant]
     Active Substance: DENOSUMAB
     Indication: Invasive lobular breast carcinoma
     Dosage: UNK
     Route: 058
     Dates: start: 202305

REACTIONS (22)
  - Hypotonia [Recovering/Resolving]
  - Pneumonia klebsiella [Unknown]
  - Dermatomyositis [Recovering/Resolving]
  - Rash [Recovered/Resolved]
  - Pruritus [Recovered/Resolved]
  - Bone lesion [Not Recovered/Not Resolved]
  - Neutropenia [Unknown]
  - Tricuspid valve incompetence [Unknown]
  - Hepatotoxicity [Recovered/Resolved]
  - Transaminases increased [Recovered/Resolved]
  - Autoimmune hepatitis [Unknown]
  - Lung disorder [Unknown]
  - Cytokine increased [Recovered/Resolved]
  - Dysphagia [Recovering/Resolving]
  - Lymphopenia [Recovered/Resolved]
  - Insomnia [Not Recovered/Not Resolved]
  - Oedema [Unknown]
  - Nausea [Recovering/Resolving]
  - Erythema [Recovering/Resolving]
  - Vertigo [Recovering/Resolving]
  - Somnolence [Recovering/Resolving]
  - Muscle disorder [Unknown]

NARRATIVE: CASE EVENT DATE: 20230301
